FAERS Safety Report 7657185-3 (Version None)
Quarter: 2011Q3

REPORT INFORMATION
  Report Type: 
  Country: None (occurrence: None)
  Receive Date: 20110804
  Receipt Date: 20100902
  Transmission Date: 20111222
  Serious: Yes (Hospitalization)
  Sender: FDA-Public Use
  Company Number: PE-ASTRAZENECA-2011SE45121

PATIENT
  Age: 74 Year
  Sex: Female

DRUGS (1)
  1. ATACAND [Suspect]
     Indication: HYPERTENSION
     Route: 048
     Dates: start: 20100613, end: 20100825

REACTIONS (7)
  - BODY TEMPERATURE DECREASED [None]
  - DRUG INEFFECTIVE [None]
  - MALAISE [None]
  - DYSPNOEA EXERTIONAL [None]
  - DIABETES MELLITUS [None]
  - FATIGUE [None]
  - HEART RATE DECREASED [None]
